FAERS Safety Report 24971281 (Version 1)
Quarter: 2025Q1

REPORT INFORMATION
  Report Type: Spontaneous
  Country: JO (occurrence: JO)
  Receive Date: 20250214
  Receipt Date: 20250214
  Transmission Date: 20250409
  Serious: Yes (Death)
  Sender: MALLINCKRODT
  Company Number: JO-MALLINCKRODT-MNK202500795

PATIENT
  Age: 15 Year

DRUGS (6)
  1. UVADEX [Suspect]
     Active Substance: METHOXSALEN
     Indication: Chronic graft versus host disease
     Route: 050
     Dates: start: 20181214, end: 20190401
  2. PROGRAF [Concomitant]
     Active Substance: TACROLIMUS
  3. IMATINIB [Concomitant]
     Active Substance: IMATINIB
  4. RUXOLITINIB [Concomitant]
     Active Substance: RUXOLITINIB
  5. PREDNISOLONE [Concomitant]
     Active Substance: PREDNISOLONE
  6. PREDNISOLONE [Concomitant]
     Active Substance: PREDNISOLONE

REACTIONS (3)
  - Graft versus host disease in lung [Fatal]
  - Disease progression [Fatal]
  - Product use in unapproved indication [Unknown]

NARRATIVE: CASE EVENT DATE: 20181214
